FAERS Safety Report 6333084-4 (Version None)
Quarter: 2009Q3

REPORT INFORMATION
  Report Type: 
  Country: None (occurrence: None)
  Receive Date: 20090828
  Receipt Date: 20090818
  Transmission Date: 20100115
  Serious: Yes (Hospitalization)
  Sender: FDA-Public Use
  Company Number: GB-PFIZER INC-2009256007

PATIENT
  Age: 66 Year

DRUGS (1)
  1. SUNITINIB MALATE [Suspect]
     Dosage: 50 MG, 1X/DAY
     Route: 048
     Dates: start: 20090620, end: 20090711

REACTIONS (6)
  - DIARRHOEA [None]
  - HEPATITIS [None]
  - JAUNDICE [None]
  - LETHARGY [None]
  - ORAL PAIN [None]
  - PYREXIA [None]
